FAERS Safety Report 8530499-0 (Version None)
Quarter: 2012Q2

REPORT INFORMATION
  Report Type: 
  Country: None (occurrence: None)
  Receive Date: 20120411
  Receipt Date: 20120216
  Transmission Date: 20120825
  Serious: No
  Sender: FDA-Public Use
  Company Number: PHEH2011US011105

PATIENT
  Sex: Female
  Weight: 61.5 kg

DRUGS (20)
  1. HYZAAR [Concomitant]
  2. CALTRATE PLUS (CALCIUM, COLECALCIFEROL, COPPER, MAGNESIUM, MANGANESE, [Concomitant]
  3. TRICOR [Concomitant]
  4. LASIX [Concomitant]
  5. NORVASC [Concomitant]
  6. LIPITOR [Concomitant]
  7. SYNTHROID [Concomitant]
  8. COREG [Concomitant]
  9. WELCHOL [Concomitant]
  10. BYSTOLIC [Concomitant]
  11. PREDNISONE TAB [Concomitant]
  12. COENZYME A (COENZYME A) [Concomitant]
  13. METROCREAM [Concomitant]
  14. ERGOCALCIFEROL [Concomitant]
  15. LOVENOX [Concomitant]
  16. MULTIVITAMINS (ASCORBIC ACID, ERGOCALCIFEROL, FOLIC ACID, NICOTINAMIDE [Concomitant]
  17. ILARIS [Suspect]
     Indication: CRYOPYRIN ASSOCIATED PERIODIC SYNDROME
     Dosage: 180 MG, ONCE IN 8 WEEKS, SUBCUTANEOUS
     Route: 058
     Dates: start: 20110829
  18. COUMADIN [Concomitant]
  19. LAMISIL [Concomitant]
  20. IMDUR [Concomitant]

REACTIONS (2)
  - ARTHRALGIA [None]
  - DRUG INEFFECTIVE [None]
